FAERS Safety Report 17517415 (Version 1)
Quarter: 2020Q1

REPORT INFORMATION
  Report Type: Spontaneous
  Country: US (occurrence: US)
  Receive Date: 20200309
  Receipt Date: 20200309
  Transmission Date: 20200409
  Serious: No
  Sender: FDA-Public Use
  Company Number: US-SA-2020SA059418

PATIENT
  Age: 62 Year
  Sex: Female

DRUGS (1)
  1. AUBAGIO [Suspect]
     Active Substance: TERIFLUNOMIDE
     Indication: MULTIPLE SCLEROSIS
     Dosage: 14 MG, QD
     Route: 048
     Dates: start: 20190508

REACTIONS (7)
  - Infection [Unknown]
  - Blood pressure increased [Unknown]
  - Tremor [Unknown]
  - Nausea [Unknown]
  - Nasopharyngitis [Unknown]
  - Fatigue [Unknown]
  - Asthenia [Unknown]
